FAERS Safety Report 8053744-7 (Version None)
Quarter: 2011Q4

REPORT INFORMATION
  Report Type: 
  Country: None (occurrence: None)
  Receive Date: 20111213
  Receipt Date: 20110811
  Transmission Date: 20120403
  Serious: No
  Sender: FDA-Public Use
  Company Number: 2011SP037987

PATIENT
  Age: 31 Year
  Sex: Female

DRUGS (1)
  1. SAPHRIS [Suspect]
     Indication: BIPOLAR DISORDER
     Dosage: 10 MG; QD; SL
     Route: 060
     Dates: start: 20110803

REACTIONS (7)
  - GLOSSODYNIA [None]
  - TONGUE DISORDER [None]
  - SPEECH DISORDER [None]
  - INAPPROPRIATE SCHEDULE OF DRUG ADMINISTRATION [None]
  - HYPOAESTHESIA [None]
  - HYPOAESTHESIA ORAL [None]
  - CHEILITIS [None]
